FAERS Safety Report 4319674-9 (Version None)
Quarter: 2004Q1

REPORT INFORMATION
  Report Type: 
  Country: None (occurrence: None)
  Receive Date: 20040316
  Receipt Date: 20040308
  Transmission Date: 20041129
  Serious: Yes (Hospitalization)
  Sender: FDA-Public Use
  Company Number: HQWYE932511FEB04

PATIENT
  Sex: Female

DRUGS (1)
  1. CORDARONE [Suspect]
     Dosage: PER PROTOCOL: 1 MG/MIN FOR 6 HOURS FOLLOWED BY 0.5 MG/MIN FOR UP TO 12 HOURS (SOMETIMES MORE), INTRA
     Route: 042

REACTIONS (3)
  - INJECTION SITE EXTRAVASATION [None]
  - INJECTION SITE THROMBOSIS [None]
  - SKIN GRAFT [None]
